FAERS Safety Report 24571835 (Version 1)
Quarter: 2024Q4

REPORT INFORMATION
  Report Type: Other
  Country: US (occurrence: US)
  Receive Date: 20241101
  Receipt Date: 20241101
  Transmission Date: 20250114
  Serious: Yes (Other)
  Sender: SIGA TECHNOLOGIES, INC.
  Company Number: US-SIGA Technologies, Inc.-2164221

PATIENT

DRUGS (1)
  1. TPOXX [Suspect]
     Active Substance: TECOVIRIMAT
     Indication: Monkeypox

REACTIONS (2)
  - Hallucination [Recovered/Resolved]
  - Prescribed overdose [Recovered/Resolved]
